FAERS Safety Report 6860247-1 (Version None)
Quarter: 2010Q3

REPORT INFORMATION
  Report Type: 
  Country: None (occurrence: None)
  Receive Date: 20100719
  Receipt Date: 20100719
  Transmission Date: 20110219
  Serious: No
  Sender: FDA-Public Use
  Company Number: None

PATIENT
  Age: 67 Year
  Sex: Male
  Weight: 118.8 kg

DRUGS (2)
  1. SPIRONOLACTONE [Suspect]
     Indication: HYPERTENSION
     Dosage: 50 MG EVERY DAY PO
     Route: 048
     Dates: start: 20020920, end: 20100413
  2. LISINOPRIL [Suspect]
     Dosage: 10 MG EVERY DAY PO
     Route: 048
     Dates: start: 20061204, end: 20100410

REACTIONS (6)
  - ATRIAL FIBRILLATION [None]
  - BLOOD GLUCOSE INCREASED [None]
  - BLOOD PRESSURE SYSTOLIC INCREASED [None]
  - BODY TEMPERATURE INCREASED [None]
  - FLATULENCE [None]
  - HYPERKALAEMIA [None]
